FAERS Safety Report 5766969-8 (Version None)
Quarter: 2008Q2

REPORT INFORMATION
  Report Type: 
  Country: None (occurrence: None)
  Receive Date: 20080609
  Receipt Date: 20080526
  Transmission Date: 20081010
  Serious: Yes (Hospitalization)
  Sender: FDA-Public Use
  Company Number: DSA_31934_2008

PATIENT
  Sex: Female

DRUGS (2)
  1. LORAZEPAM [Suspect]
     Dosage: (NOT THE PRESCRIBED AMOUNT ORAL)
     Route: 048
     Dates: start: 20080526, end: 20080526
  2. TRICYCLIC ANTIDEPRESSANTS (NON-SPECIFIED TRICYCLIC ANTIDEPRESSANT) [Suspect]
     Dosage: (NOT THE PRESCRIBED AMOUNT ORAL)
     Route: 048
     Dates: start: 20080526, end: 20080526

REACTIONS (4)
  - ASPIRATION [None]
  - MEDICATION ERROR [None]
  - MULTIPLE DRUG OVERDOSE ACCIDENTAL [None]
  - RESPIRATORY FAILURE [None]
